FAERS Safety Report 22027245 (Version 1)
Quarter: 2023Q1

REPORT INFORMATION
  Report Type: Report from Study
  Country: BR (occurrence: BR)
  Receive Date: 20230223
  Receipt Date: 20230223
  Transmission Date: 20230418
  Serious: Yes (Other)
  Sender: FDA-Public Use
  Company Number: BR-002147023-NVSC2023BR037753

PATIENT
  Sex: Female

DRUGS (1)
  1. KISQALI [Suspect]
     Active Substance: RIBOCICLIB
     Indication: Product used for unknown indication
     Dosage: 3 DOSAGE FORM, QD (A DAY)
     Route: 065

REACTIONS (5)
  - Metastases to fallopian tube [Unknown]
  - Metastases to ovary [Unknown]
  - Movement disorder [Not Recovered/Not Resolved]
  - Weight increased [Unknown]
  - Asthenia [Not Recovered/Not Resolved]
